FAERS Safety Report 9031675 (Version 2)
Quarter: 2013Q1

REPORT INFORMATION
  Report Type: Report from Study
  Country: US (occurrence: US)
  Receive Date: 20130124
  Receipt Date: 20130206
  Transmission Date: 20140127
  Serious: Yes (Hospitalization)
  Sender: FDA-Public Use
  Company Number: US-ACTELION-A-US2013-77872

PATIENT
  Age: 32 Year
  Sex: Female

DRUGS (3)
  1. VELETRI [Suspect]
     Indication: PULMONARY ARTERIAL HYPERTENSION
     Dosage: 43.7 NG/KG, PER MIN
     Route: 042
     Dates: start: 20110403
  2. TRACLEER [Concomitant]
  3. SILDENAFIL [Concomitant]

REACTIONS (8)
  - Troponin increased [Unknown]
  - Dyspnoea [Unknown]
  - Device related infection [Unknown]
  - Central venous catheterisation [Unknown]
  - Catheter site haemorrhage [Unknown]
  - Bleeding time abnormal [Unknown]
  - Fatigue [Unknown]
  - Malaise [Unknown]
